FAERS Safety Report 16202610 (Version 1)
Quarter: 2019Q2

REPORT INFORMATION
  Report Type: Spontaneous
  Country: US (occurrence: US)
  Receive Date: 20190416
  Receipt Date: 20190416
  Transmission Date: 20190711
  Serious: No
  Sender: FDA-Public Use
  Company Number: US-PFIZER INC-2018354140

PATIENT
  Age: 9 Year
  Sex: Male
  Weight: 36.6 kg

DRUGS (2)
  1. GENOTROPIN [Suspect]
     Active Substance: SOMATROPIN
     Indication: GROWTH HORMONE DEFICIENCY
     Dosage: 1.6 MG, DAILY (ON HIS BOTTOM DAILY)
     Dates: start: 2011
  2. GENOTROPIN [Suspect]
     Active Substance: SOMATROPIN
     Indication: SEPTO-OPTIC DYSPLASIA

REACTIONS (6)
  - Poor quality device used [Unknown]
  - Wrong technique in device usage process [Unknown]
  - Hand-foot-and-mouth disease [Recovered/Resolved]
  - Product dose omission [Unknown]
  - Weight increased [Recovered/Resolved]
  - Impetigo [Recovered/Resolved]
